FAERS Safety Report 16051937 (Version 1)
Quarter: 2019Q1

REPORT INFORMATION
  Report Type: Spontaneous
  Country: US (occurrence: US)
  Receive Date: 20190308
  Receipt Date: 20190308
  Transmission Date: 20190418
  Serious: Yes (Other)
  Sender: FDA-Public Use
  Company Number: US-UPSHER-SMITH LABORATORIES, LLC-2019USL00139

PATIENT
  Age: 66 Year
  Sex: Female
  Weight: 65.76 kg

DRUGS (4)
  1. PACERONE [Suspect]
     Active Substance: AMIODARONE HYDROCHLORIDE
     Indication: ARRHYTHMIA
     Dosage: 200 MG, 1X/DAY
     Route: 048
     Dates: start: 201901, end: 20190217
  2. PACERONE [Suspect]
     Active Substance: AMIODARONE HYDROCHLORIDE
     Dosage: 100 MG, 4X/WEEK
     Route: 048
     Dates: start: 20190118
  3. ELIQUIS [Suspect]
     Active Substance: APIXABAN
     Dosage: 10 MG, 2X/DAY
     Dates: end: 20190217
  4. ELIQUIS [Suspect]
     Active Substance: APIXABAN
     Dosage: ^CUT THE DOSE IN HALF^
     Dates: start: 20190218

REACTIONS (5)
  - Arrhythmia [Not Recovered/Not Resolved]
  - Anxiety [Not Recovered/Not Resolved]
  - Swelling [Not Recovered/Not Resolved]
  - Sleep disorder [Not Recovered/Not Resolved]
  - Heart rate increased [Unknown]

NARRATIVE: CASE EVENT DATE: 2019
